FAERS Safety Report 5661246-8 (Version None)
Quarter: 2008Q1

REPORT INFORMATION
  Report Type: 
  Country: None (occurrence: None)
  Receive Date: 20080312
  Receipt Date: 20080229
  Transmission Date: 20080703
  Serious: Yes (Hospitalization)
  Sender: FDA-Public Use
  Company Number: B0499277A

PATIENT
  Age: 38 Year
  Sex: Female

DRUGS (5)
  1. A-GRAM [Suspect]
     Indication: ENDODONTIC PROCEDURE
     Dosage: 500MG PER DAY
     Route: 048
     Dates: start: 20071002
  2. IBUPROFEN [Suspect]
     Indication: PAIN
     Route: 048
     Dates: start: 20071002
  3. LEVOTHYROX [Concomitant]
     Route: 065
  4. IDEOS [Concomitant]
     Route: 065
  5. CORTANCYL [Concomitant]
     Route: 065

REACTIONS (2)
  - PRURIGO [None]
  - RASH MACULO-PAPULAR [None]
